FAERS Safety Report 6134242-4 (Version None)
Quarter: 2009Q1

REPORT INFORMATION
  Report Type: 
  Country: None (occurrence: None)
  Receive Date: 20090325
  Receipt Date: 20090311
  Transmission Date: 20090719
  Serious: Yes (Life-Threatening)
  Sender: FDA-Public Use
  Company Number: 221874

PATIENT
  Age: 50 Year
  Sex: Female

DRUGS (4)
  1. PACLITAXEL [Suspect]
     Dosage: 60 MG/M2 INTRAVENOUS
     Route: 042
     Dates: start: 20090306, end: 20090306
  2. RANIDIL [Concomitant]
  3. DECADRON [Concomitant]
  4. TRIMETRON /00072502/ [Concomitant]

REACTIONS (3)
  - BURNING SENSATION [None]
  - PRURITUS [None]
  - RASH ERYTHEMATOUS [None]
